FAERS Safety Report 21821491 (Version 1)
Quarter: 2023Q1

REPORT INFORMATION
  Report Type: Report from Study
  Country: CA (occurrence: CA)
  Receive Date: 20230105
  Receipt Date: 20230105
  Transmission Date: 20230417
  Serious: Yes (Other)
  Sender: FDA-Public Use
  Company Number: CA-TAKEDA-2023TUS000869

PATIENT
  Age: 41 Year
  Sex: Female

DRUGS (4)
  1. VEDOLIZUMAB [Suspect]
     Active Substance: VEDOLIZUMAB
     Indication: Colitis ulcerative
     Dosage: 300 MILLIGRAM
     Route: 042
     Dates: start: 20210202
  2. VEDOLIZUMAB [Suspect]
     Active Substance: VEDOLIZUMAB
     Dosage: 300 MILLIGRAM, Q4WEEKS
     Route: 042
     Dates: start: 20211019
  3. XELJANZ [Concomitant]
     Active Substance: TOFACITINIB CITRATE
     Dosage: UNK
     Dates: start: 202003
  4. ZOLOFT [Concomitant]
     Active Substance: SERTRALINE HYDROCHLORIDE
     Dosage: 200 MILLIGRAM

REACTIONS (2)
  - Blood iron decreased [Unknown]
  - Off label use [Unknown]

NARRATIVE: CASE EVENT DATE: 20211019
